FAERS Safety Report 7694315-1 (Version None)
Quarter: 2011Q3

REPORT INFORMATION
  Report Type: 
  Country: None (occurrence: None)
  Receive Date: 20110819
  Receipt Date: 20110817
  Transmission Date: 20111222
  Serious: Yes (Death, Other)
  Sender: FDA-Public Use
  Company Number: AU-B.I. PHARMACEUTICALS,INC./RIDGEFIELD-2011-AU-00771AU

PATIENT
  Sex: Male

DRUGS (5)
  1. BISPHOSPHONATE [Concomitant]
     Dosage: WEEKLY
  2. PRADAXA [Suspect]
     Indication: CEREBROVASCULAR ACCIDENT PROPHYLAXIS
     Dosage: 220 MG
     Dates: start: 20110801
  3. WARFARIN SODIUM [Suspect]
     Dates: end: 20110801
  4. CLOPIDOGREL [Concomitant]
  5. PRADAXA [Suspect]
     Indication: ATRIAL FIBRILLATION

REACTIONS (2)
  - ARRHYTHMIA [None]
  - SUDDEN DEATH [None]
